FAERS Safety Report 22307579 (Version 5)
Quarter: 2024Q1

REPORT INFORMATION
  Report Type: Report from Study
  Country: US (occurrence: US)
  Receive Date: 20230511
  Receipt Date: 20240124
  Transmission Date: 20240410
  Serious: Yes (Other)
  Sender: FDA-Public Use
  Company Number: US-002147023-NVSC2023US104776

PATIENT
  Sex: Male

DRUGS (1)
  1. KESIMPTA [Suspect]
     Active Substance: OFATUMUMAB
     Indication: Relapsing multiple sclerosis
     Dosage: UNK
     Route: 065
     Dates: start: 20230414

REACTIONS (7)
  - Multiple sclerosis relapse [Recovering/Resolving]
  - Somnolence [Recovered/Resolved]
  - Balance disorder [Unknown]
  - Arthralgia [Unknown]
  - Fatigue [Recovered/Resolved]
  - Restless legs syndrome [Unknown]
  - Sleep disorder due to general medical condition, insomnia type [Not Recovered/Not Resolved]
